FAERS Safety Report 13956262 (Version 1)
Quarter: 2017Q3

REPORT INFORMATION
  Report Type: Spontaneous
  Country: US (occurrence: US)
  Receive Date: 20170911
  Receipt Date: 20170911
  Transmission Date: 20171128
  Serious: No
  Sender: FDA-Public Use
  Company Number: US-ASTRAZENECA-2017SE03294

PATIENT
  Sex: Male

DRUGS (1)
  1. ALVESCO [Suspect]
     Active Substance: CICLESONIDE
     Indication: ASTHMA
     Dosage: UNK
     Route: 055

REACTIONS (15)
  - Oropharyngeal pain [Unknown]
  - Headache [Unknown]
  - Hypersensitivity [Unknown]
  - Pyrexia [Unknown]
  - Dizziness [Unknown]
  - Nasal oedema [Unknown]
  - Myalgia [Unknown]
  - Candida infection [Unknown]
  - Nausea [Unknown]
  - Chills [Unknown]
  - Fatigue [Unknown]
  - Pain [Unknown]
  - Asthenia [Unknown]
  - Upper respiratory tract infection [Unknown]
  - Nasal congestion [Unknown]
